FAERS Safety Report 4923623-X (Version None)
Quarter: 2006Q1

REPORT INFORMATION
  Report Type: 
  Country: None (occurrence: None)
  Receive Date: 20060227
  Receipt Date: 20050125
  Transmission Date: 20060701
  Serious: Yes (Hospitalization, Disabling)
  Sender: FDA-Public Use
  Company Number: US-MERCK-0501USA04153

PATIENT
  Age: 56 Year
  Sex: Female
  Weight: 106 kg

DRUGS (2)
  1. VIOXX [Suspect]
     Indication: OSTEOARTHRITIS
     Route: 048
     Dates: start: 20000601, end: 20040302
  2. VIOXX [Suspect]
     Indication: PAIN
     Route: 048
     Dates: start: 20000601, end: 20040302

REACTIONS (4)
  - ADVERSE EVENT [None]
  - ARTERIOVENOUS MALFORMATION [None]
  - SIMPLE PARTIAL SEIZURES [None]
  - SURGERY [None]
